FAERS Safety Report 10143870 (Version 2)
Quarter: 2014Q3

REPORT INFORMATION
  Report Type: Spontaneous
  Country: PT (occurrence: PT)
  Receive Date: 20140430
  Receipt Date: 20140814
  Transmission Date: 20150326
  Serious: Yes (Disabling)
  Sender: FDA-Public Use
  Company Number: PT-TEVA-477593ISR

PATIENT
  Age: 93 Year
  Sex: Female
  Weight: 63 kg

DRUGS (8)
  1. DONEPEZILO [Concomitant]
     Indication: DEMENTIA ALZHEIMER^S TYPE
     Dosage: 10 MILLIGRAM DAILY;
     Route: 048
     Dates: end: 20140323
  2. NITROGLYCERIN 5MG/24H PATCH [Concomitant]
  3. DONEPEZIL [Suspect]
     Active Substance: DONEPEZIL
     Dosage: 10 MILLIGRAM DAILY; USE A SPECIFIC PACK
     Route: 048
     Dates: start: 20130324, end: 20140327
  4. LEVODOPA 100MG+CARBIDOPA 25MG [Concomitant]
     Indication: DEMENTIA ALZHEIMER^S TYPE
     Route: 048
  5. BIPERIDEN 2MG [Concomitant]
     Route: 048
  6. BISOPROLOL 5MG [Concomitant]
     Indication: CARDIAC FAILURE
     Route: 048
  7. DONEPEZIL [Suspect]
     Active Substance: DONEPEZIL
     Indication: DEMENTIA ALZHEIMER^S TYPE
     Dosage: 10 MILLIGRAM DAILY;
     Route: 048
  8. ZOLPIDEM 10MG [Concomitant]
     Route: 048

REACTIONS (8)
  - Irritability [Recovered/Resolved]
  - Sleep disorder [Recovered/Resolved]
  - Poor quality sleep [Recovered/Resolved]
  - Aggression [Recovered/Resolved]
  - Product substitution issue [Unknown]
  - Agitation [Recovered/Resolved]
  - Abnormal behaviour [Recovered/Resolved]
  - Nightmare [Recovered/Resolved]

NARRATIVE: CASE EVENT DATE: 20140324
